FAERS Safety Report 6919211-6 (Version None)
Quarter: 2010Q3

REPORT INFORMATION
  Report Type: 
  Country: None (occurrence: None)
  Receive Date: 20100811
  Receipt Date: 20100803
  Transmission Date: 20110219
  Serious: Yes (Life-Threatening, Other)
  Sender: FDA-Public Use
  Company Number: BR-ROCHE-719325

PATIENT
  Age: 51 Year
  Sex: Female

DRUGS (5)
  1. HERCEPTIN [Suspect]
     Route: 042
  2. HERCEPTIN [Suspect]
     Dosage: INDICATION: BONE METASTASIS WITH LYTIC LESIONS
     Route: 042
     Dates: start: 20100802
  3. ZOLEDRONATE [Concomitant]
     Route: 042
     Dates: start: 20100802
  4. DECADRON [Concomitant]
     Indication: PREMEDICATION
     Dates: start: 20100802
  5. KYTRIL [Concomitant]
     Indication: PREMEDICATION
     Dates: start: 20100802

REACTIONS (4)
  - INFUSION RELATED REACTION [None]
  - LEUKOCYTOSIS [None]
  - LUNG NEOPLASM [None]
  - MALIGNANT NEOPLASM PROGRESSION [None]
